FAERS Safety Report 25449532 (Version 1)
Quarter: 2025Q2

REPORT INFORMATION
  Report Type: Report from Study
  Country: US (occurrence: US)
  Receive Date: 20250618
  Receipt Date: 20250618
  Transmission Date: 20250717
  Serious: Yes (Other)
  Sender: TAKEDA
  Company Number: US-TAKEDA-2025TUS053904

PATIENT
  Sex: Male
  Weight: 80 kg

DRUGS (5)
  1. VEDOLIZUMAB [Suspect]
     Active Substance: VEDOLIZUMAB
     Indication: Crohn^s disease
  2. CELEBREX [Concomitant]
     Active Substance: CELECOXIB
     Indication: Arthralgia
  3. OMEPRAZOLE [Concomitant]
     Active Substance: OMEPRAZOLE
     Indication: Hyperchlorhydria
  4. TIZANIDINE [Concomitant]
     Active Substance: TIZANIDINE
     Indication: Neuralgia
     Dosage: 4 MILLIGRAM, QD
  5. TIZANIDINE [Concomitant]
     Active Substance: TIZANIDINE
     Indication: Muscle relaxant therapy

REACTIONS (8)
  - Gastrointestinal anastomotic stenosis [Unknown]
  - Gastrointestinal inflammation [Unknown]
  - Arthritis [Unknown]
  - Myalgia [Unknown]
  - Lethargy [Unknown]
  - Pouchitis [Unknown]
  - Pain [Unknown]
  - Fatigue [Unknown]
